FAERS Safety Report 16326517 (Version 1)
Quarter: 2019Q2

REPORT INFORMATION
  Report Type: Spontaneous
  Country: US (occurrence: US)
  Receive Date: 20190517
  Receipt Date: 20190517
  Transmission Date: 20190711
  Serious: No
  Sender: FDA-Public Use
  Company Number: US-TAIHO ONCOLOGY  INC-EU-2018-01775

PATIENT
  Age: 60 Year
  Sex: Male
  Weight: 69.01 kg

DRUGS (2)
  1. NORCO [Concomitant]
     Active Substance: ACETAMINOPHEN\HYDROCODONE BITARTRATE
     Indication: PROCEDURAL PAIN
     Dosage: NI
  2. LONSURF [Suspect]
     Active Substance: TIPIRACIL HYDROCHLORIDE\TRIFLURIDINE
     Indication: RECTAL CANCER
     Dosage: CYCLE 5 STARTED ON 11/FEB/2019
     Route: 048
     Dates: start: 20181001

REACTIONS (8)
  - Musculoskeletal chest pain [Not Recovered/Not Resolved]
  - White blood cell count decreased [Recovered/Resolved]
  - Alopecia [Not Recovered/Not Resolved]
  - Fatigue [Not Recovered/Not Resolved]
  - Carcinoembryonic antigen increased [Recovered/Resolved]
  - Neutrophil count decreased [Recovered/Resolved]
  - Cytopenia [Recovered/Resolved]
  - Decreased appetite [Not Recovered/Not Resolved]

NARRATIVE: CASE EVENT DATE: 201810
